FAERS Safety Report 23336834 (Version 1)
Quarter: 2023Q4

REPORT INFORMATION
  Report Type: Spontaneous
  Country: US (occurrence: US)
  Receive Date: 20231226
  Receipt Date: 20231226
  Transmission Date: 20240109
  Serious: No
  Sender: FDA-Public Use
  Company Number: US-AJANTA-2023AJA00254

PATIENT
  Age: 75 Year
  Sex: Female
  Weight: 121 kg

DRUGS (2)
  1. DULOXETINE [Suspect]
     Active Substance: DULOXETINE
     Indication: Neuropathic arthropathy
     Route: 048
     Dates: start: 20231109, end: 20231109
  2. DULOXETINE [Suspect]
     Active Substance: DULOXETINE
     Indication: Neuropathic arthropathy

REACTIONS (4)
  - Headache [Recovered/Resolved]
  - Tremor [Recovering/Resolving]
  - Diplopia [Recovering/Resolving]
  - Vision blurred [Recovering/Resolving]

NARRATIVE: CASE EVENT DATE: 20231109
